FAERS Safety Report 10175131 (Version 1)
Quarter: 2014Q2

REPORT INFORMATION
  Report Type: Spontaneous
  Country: IN (occurrence: IN)
  Receive Date: 20140515
  Receipt Date: 20140515
  Transmission Date: 20141212
  Serious: Yes (Other)
  Sender: FDA-Public Use
  Company Number: IN-WATSON-2014-10000

PATIENT
  Age: 52 Year
  Sex: Female

DRUGS (2)
  1. CHLOROQUINE (UNKNOWN) [Suspect]
     Indication: SJOGREN^S SYNDROME
     Dosage: 250 MG, DAILY
     Route: 065
  2. METHOTREXATE [Concomitant]
     Indication: SJOGREN^S SYNDROME
     Dosage: 10 MG, 1/WEEK
     Route: 065

REACTIONS (1)
  - Acquired pigmented retinopathy [Unknown]
